FAERS Safety Report 13736468 (Version 1)
Quarter: 2017Q3

REPORT INFORMATION
  Report Type: Spontaneous
  Country: US (occurrence: US)
  Receive Date: 20170707
  Receipt Date: 20170707
  Transmission Date: 20171127
  Serious: Yes (Other)
  Sender: FDA-Public Use
  Company Number: None

PATIENT
  Age: 8 Year
  Sex: Female
  Weight: 26.79 kg

DRUGS (2)
  1. NOVOPEN ECHO [Suspect]
     Active Substance: DEVICE
  2. NOVOPEN ECHO (INSULIN) [Suspect]
     Active Substance: INSULIN HUMAN

REACTIONS (3)
  - Drug dose omission [None]
  - Device malfunction [None]
  - Blood glucose increased [None]

NARRATIVE: CASE EVENT DATE: 20170707
